FAERS Safety Report 17343336 (Version 1)
Quarter: 2020Q1

REPORT INFORMATION
  Report Type: Spontaneous
  Country: US (occurrence: US)
  Receive Date: 20200129
  Receipt Date: 20200129
  Transmission Date: 20200409
  Serious: No
  Sender: FDA-Public Use
  Company Number: US-ALLERGAN-1908432US

PATIENT
  Age: 41 Year
  Sex: Female

DRUGS (1)
  1. BOTOX [Suspect]
     Active Substance: ONABOTULINUMTOXINA
     Indication: PRODUCT USED FOR UNKNOWN INDICATION
     Dosage: UNK UNK, SINGLE
     Route: 030

REACTIONS (8)
  - Lip dry [Recovered/Resolved]
  - Lip swelling [Recovered/Resolved]
  - Dermatitis contact [Recovered/Resolved]
  - Lip swelling [Recovered/Resolved]
  - Lip exfoliation [Recovered/Resolved]
  - Lip erythema [Recovered/Resolved]
  - Paraesthesia [Recovered/Resolved]
  - Lip exfoliation [Recovered/Resolved]

NARRATIVE: CASE EVENT DATE: 20170809
